FAERS Safety Report 17243153 (Version 3)
Quarter: 2020Q1

REPORT INFORMATION
  Report Type: Spontaneous
  Country: DE (occurrence: DE)
  Receive Date: 20200107
  Receipt Date: 20200117
  Transmission Date: 20200409
  Serious: Yes (Life-Threatening, Other)
  Sender: FDA-Public Use
  Company Number: DE-B.I. PHARMACEUTICALS,INC./RIDGEFIELD-2020-MI-000862

PATIENT
  Age: 59 Year
  Sex: Female
  Weight: 63 kg

DRUGS (9)
  1. L THYROXIN [Concomitant]
     Active Substance: LEVOTHYROXINE SODIUM
     Indication: THYROID DISORDER
     Route: 048
  2. OFEV [Suspect]
     Active Substance: NINTEDANIB
     Indication: IDIOPATHIC PULMONARY FIBROSIS
     Route: 048
     Dates: start: 201909
  3. VIGANTOLETTEN [Concomitant]
     Active Substance: CHOLECALCIFEROL
     Indication: VITAMIN D DEFICIENCY
     Route: 048
  4. GAVISCON DUAL [Concomitant]
     Indication: PRODUCT USED FOR UNKNOWN INDICATION
     Route: 065
  5. ESOMEPRAZOL [ESOMEPRAZOLE] [Concomitant]
     Active Substance: ESOMEPRAZOLE
     Indication: GASTROOESOPHAGEAL REFLUX DISEASE
     Route: 048
  6. ZOLEDRONIC ACID [Concomitant]
     Active Substance: ZOLEDRONIC ACID
     Indication: DRUG THERAPY
     Route: 065
  7. CANDESARTAN. [Concomitant]
     Active Substance: CANDESARTAN
     Indication: HYPERTENSION
     Route: 048
  8. MCP [Concomitant]
     Active Substance: METOCLOPRAMIDE HYDROCHLORIDE
     Indication: PRODUCT USED FOR UNKNOWN INDICATION
     Route: 065
  9. METOPROLOL. [Concomitant]
     Active Substance: METOPROLOL
     Indication: HYPERTENSION
     Route: 048

REACTIONS (1)
  - Breast cancer female [Not Recovered/Not Resolved]

NARRATIVE: CASE EVENT DATE: 201911
